FAERS Safety Report 16687053 (Version 2)
Quarter: 2020Q3

REPORT INFORMATION
  Report Type: Spontaneous
  Country: US (occurrence: US)
  Receive Date: 20190809
  Receipt Date: 20200827
  Transmission Date: 20201102
  Serious: Yes (Other)
  Sender: FDA-Public Use
  Company Number: US-ASTRAZENECA-2019SF10959

PATIENT
  Age: 14719 Day
  Sex: Female
  Weight: 104.3 kg

DRUGS (19)
  1. NEXIUM [Suspect]
     Active Substance: ESOMEPRAZOLE MAGNESIUM
     Indication: GASTROOESOPHAGEAL REFLUX DISEASE
     Route: 048
     Dates: start: 2012
  2. VICODIN [Concomitant]
     Active Substance: ACETAMINOPHEN\HYDROCODONE BITARTRATE
     Indication: PAIN
     Dates: start: 2012
  3. BENADRYL [Concomitant]
     Active Substance: DIPHENHYDRAMINE HYDROCHLORIDE
     Indication: SLEEP DISORDER
     Dates: start: 2012
  4. TYLENOL [Concomitant]
     Active Substance: ACETAMINOPHEN
     Indication: PAIN
  5. NEXIUM [Suspect]
     Active Substance: ESOMEPRAZOLE MAGNESIUM
     Indication: GASTROOESOPHAGEAL REFLUX DISEASE
     Route: 048
     Dates: start: 20120731
  6. PANTOPRAZOLE [Suspect]
     Active Substance: PANTOPRAZOLE
     Indication: GASTROOESOPHAGEAL REFLUX DISEASE
     Dosage: PRESENT
     Route: 065
  7. CELAXA [Concomitant]
     Indication: DEPRESSION
     Route: 048
     Dates: start: 20121105
  8. MOTRIN [Concomitant]
     Active Substance: IBUPROFEN
     Indication: PAIN
  9. TOPROL XL [Concomitant]
     Active Substance: METOPROLOL SUCCINATE
     Route: 048
     Dates: start: 20121105
  10. MULTIVITAMINS [Concomitant]
     Active Substance: VITAMINS
     Route: 048
     Dates: start: 20121105
  11. PRILOSEC OTC [Suspect]
     Active Substance: OMEPRAZOLE MAGNESIUM
     Route: 048
     Dates: start: 2011, end: 2012
  12. AMBIEN [Concomitant]
     Active Substance: ZOLPIDEM TARTRATE
     Indication: SLEEP DISORDER
     Route: 048
     Dates: start: 20121105
  13. AMLODIPINE [Concomitant]
     Active Substance: AMLODIPINE BESYLATE
     Indication: HIV INFECTION
     Dates: start: 2015
  14. PEPCID AC [Concomitant]
     Active Substance: FAMOTIDINE
     Dates: start: 2012, end: 2014
  15. REGLAN [Concomitant]
     Active Substance: METOCLOPRAMIDE HYDROCHLORIDE
     Dates: start: 2012
  16. AMBIEN [Concomitant]
     Active Substance: ZOLPIDEM TARTRATE
     Indication: SLEEP DISORDER
     Dates: start: 2012
  17. OMEPRAZOLE. [Suspect]
     Active Substance: OMEPRAZOLE
     Indication: GASTROOESOPHAGEAL REFLUX DISEASE
     Dosage: GENERIC
     Route: 065
     Dates: start: 2012
  18. PROPAMIDOL [Concomitant]
     Indication: HIV INFECTION
  19. TUMS [Concomitant]
     Active Substance: CALCIUM CARBONATE
     Indication: GASTROOESOPHAGEAL REFLUX DISEASE

REACTIONS (2)
  - Acute kidney injury [Not Recovered/Not Resolved]
  - Renal failure [Unknown]

NARRATIVE: CASE EVENT DATE: 20120601
